FAERS Safety Report 10758944 (Version 2)
Quarter: 2015Q1

REPORT INFORMATION
  Report Type: Spontaneous
  Country: US (occurrence: US)
  Receive Date: 20150203
  Receipt Date: 20150303
  Transmission Date: 20150721
  Serious: No
  Sender: FDA-Public Use
  Company Number: US-PFIZER INC-2015041274

PATIENT
  Age: 18 Year
  Sex: Female

DRUGS (2)
  1. MEDROXYPROGESTERONE ACETATE. [Suspect]
     Active Substance: MEDROXYPROGESTERONE ACETATE
     Indication: CONTRACEPTION
     Dosage: 150 MG, EVERY 3 MONTHS
     Route: 030
  2. INDOMETHACIN. [Concomitant]
     Active Substance: INDOMETHACIN
     Dosage: 25 MG, 2X/DAY (EVERY 12 HOURS)

REACTIONS (2)
  - Injection site pain [Unknown]
  - Incorrect product storage [Unknown]

NARRATIVE: CASE EVENT DATE: 20150128
